FAERS Safety Report 4391156-8 (Version None)
Quarter: 2004Q2

REPORT INFORMATION
  Report Type: 
  Country: None (occurrence: None)
  Receive Date: 20040621
  Receipt Date: 20031201
  Transmission Date: 20050107
  Serious: Yes (Death)
  Sender: FDA-Public Use
  Company Number: USA-2003-0011614

PATIENT
  Age: 36 Year
  Sex: Female
  Weight: 64.4 kg

DRUGS (7)
  1. OXYCODONE HCL [Suspect]
  2. HYDROCODONE BITARTRATE [Suspect]
  3. ACETAMINOPHEN [Suspect]
  4. CAFFEINE (CAFFEINE) [Suspect]
  5. NICOTINE [Suspect]
  6. CITALOPRAM (CITALOPRAM) [Suspect]
  7. DIPHENHYDRAMINE HCL [Suspect]

REACTIONS (1)
  - MULTIPLE DRUG OVERDOSE ACCIDENTAL [None]
